FAERS Safety Report 8005899-8 (Version None)
Quarter: 2011Q4

REPORT INFORMATION
  Report Type: 
  Country: None (occurrence: None)
  Receive Date: 20111223
  Receipt Date: 20111214
  Transmission Date: 20120403
  Serious: Yes (Hospitalization, Other)
  Sender: FDA-Public Use
  Company Number: US-ASTRAZENECA-2010SE40267

PATIENT
  Age: 55 Year
  Sex: Male
  Weight: 97.5 kg

DRUGS (15)
  1. LORAZEPAM [Concomitant]
  2. SEROQUEL XR [Suspect]
     Route: 048
  3. LITHIUM [Concomitant]
     Indication: BIPOLAR DISORDER
  4. SEROQUEL XR [Suspect]
     Indication: BIPOLAR DISORDER
     Route: 048
     Dates: start: 20070101
  5. SEROQUEL XR [Suspect]
     Indication: OBSESSIVE-COMPULSIVE DISORDER
     Route: 048
     Dates: start: 20070101
  6. SEROQUEL XR [Suspect]
     Route: 048
  7. RISTORAL [Concomitant]
     Indication: SLEEP DISORDER
  8. EFFEXOR [Concomitant]
     Indication: MOOD SWINGS
  9. SOLINOPRAM [Concomitant]
  10. SEROQUEL XR [Suspect]
     Route: 048
  11. SEROQUEL XR [Suspect]
     Route: 048
  12. KLONOPIN [Concomitant]
     Indication: ANXIETY
  13. SEROQUEL XR [Suspect]
     Indication: SCHIZOPHRENIA
     Route: 048
     Dates: start: 20070101
  14. SEROQUEL XR [Suspect]
     Route: 048
  15. SEROQUEL XR [Suspect]
     Route: 048

REACTIONS (16)
  - INSOMNIA [None]
  - CONSTIPATION [None]
  - OFF LABEL USE [None]
  - DRUG INEFFECTIVE [None]
  - MUSCULOSKELETAL PAIN [None]
  - DRY MOUTH [None]
  - MYALGIA [None]
  - MALAISE [None]
  - RESTLESS LEGS SYNDROME [None]
  - MYOCARDIAL INFARCTION [None]
  - BRAIN NEOPLASM [None]
  - FATIGUE [None]
  - DRUG DOSE OMISSION [None]
  - TACHYPHRENIA [None]
  - WEIGHT DECREASED [None]
  - WRONG TECHNIQUE IN DRUG USAGE PROCESS [None]
